FAERS Safety Report 23406975 (Version 1)
Quarter: 2024Q1

REPORT INFORMATION
  Report Type: Other
  Country: CA (occurrence: CA)
  Receive Date: 20240116
  Receipt Date: 20240116
  Transmission Date: 20240410
  Serious: Yes (Other)
  Sender: FDA-Public Use
  Company Number: CA-GE HEALTHCARE-2024CSU000370

PATIENT
  Age: 52 Year
  Sex: Male

DRUGS (1)
  1. OMNIPAQUE [Suspect]
     Active Substance: IOHEXOL
     Indication: Scan
     Dosage: UNK, TOTAL
     Route: 042

REACTIONS (3)
  - Sneezing [Recovered/Resolved]
  - Respiratory disorder [Recovered/Resolved]
  - Hypersensitivity [Recovered/Resolved]
